FAERS Safety Report 11574862 (Version 2)
Quarter: 2015Q4

REPORT INFORMATION
  Report Type: Spontaneous
  Country: US (occurrence: US)
  Receive Date: 20150916
  Receipt Date: 20151027
  Transmission Date: 20160304
  Serious: No
  Sender: FDA-Public Use
  Company Number: US-ELI_LILLY_AND_COMPANY-US200911003866

PATIENT
  Age: 67 Year
  Sex: Female

DRUGS (2)
  1. FORTEO [Suspect]
     Active Substance: TERIPARATIDE
     Dosage: 20 UG, DAILY (1/D)
     Dates: start: 2009, end: 20100324
  2. FORTEO [Suspect]
     Active Substance: TERIPARATIDE
     Indication: OSTEOPOROSIS
     Dosage: 20 UG, DAILY (1/D)
     Dates: start: 2009, end: 2009

REACTIONS (18)
  - Malaise [Unknown]
  - Drug dose omission [Not Recovered/Not Resolved]
  - Diarrhoea [Unknown]
  - Oropharyngeal pain [Unknown]
  - Upper respiratory tract infection [Unknown]
  - Incorrect product storage [Unknown]
  - Pyrexia [Unknown]
  - Vomiting [Unknown]
  - Nasal congestion [Not Recovered/Not Resolved]
  - Viral infection [Unknown]
  - Medication error [Unknown]
  - Influenza [Unknown]
  - Lymphadenopathy [Unknown]
  - Drug dose omission [Unknown]
  - Pharyngeal erythema [Unknown]
  - Nasopharyngitis [Not Recovered/Not Resolved]
  - Anxiety [Unknown]
  - Nausea [Unknown]

NARRATIVE: CASE EVENT DATE: 2009
